FAERS Safety Report 12791579 (Version 3)
Quarter: 2017Q4

REPORT INFORMATION
  Report Type: Report from Study
  Country: DE (occurrence: DE)
  Receive Date: 20160929
  Receipt Date: 20171030
  Transmission Date: 20180320
  Serious: Yes (Other)
  Sender: FDA-Public Use
  Company Number: DE-IPSEN BIOPHARMACEUTICALS, INC.-2016-03710

PATIENT
  Age: 5 Year
  Sex: Female
  Weight: 21.6 kg

DRUGS (10)
  1. INCRELEX [Suspect]
     Active Substance: MECASERMIN
     Route: 058
     Dates: start: 20151123, end: 20160614
  2. INCRELEX [Suspect]
     Active Substance: MECASERMIN
     Route: 058
     Dates: start: 20170320
  3. INCRELEX [Suspect]
     Active Substance: MECASERMIN
     Route: 058
     Dates: start: 20120330, end: 20120423
  4. INCRELEX [Suspect]
     Active Substance: MECASERMIN
     Route: 058
     Dates: start: 20120424, end: 20130709
  5. INCRELEX [Suspect]
     Active Substance: MECASERMIN
     Route: 058
     Dates: start: 20140212, end: 20140505
  6. INCRELEX [Suspect]
     Active Substance: MECASERMIN
     Route: 058
     Dates: start: 20141104, end: 20151122
  7. INCRELEX [Suspect]
     Active Substance: MECASERMIN
     Route: 058
     Dates: start: 20140506, end: 20141103
  8. INCRELEX [Suspect]
     Active Substance: MECASERMIN
     Indication: PRIMARY INSULIN LIKE GROWTH FACTOR-1 DEFICIENCY
     Route: 058
     Dates: start: 20130710, end: 20140211
  9. INCRELEX [Suspect]
     Active Substance: MECASERMIN
     Route: 058
     Dates: start: 20120228, end: 20120329
  10. INCRELEX [Suspect]
     Active Substance: MECASERMIN
     Route: 058
     Dates: start: 20160614, end: 20170319

REACTIONS (2)
  - Adenoidal hypertrophy [Recovered/Resolved]
  - Middle ear effusion [Recovered/Resolved]

NARRATIVE: CASE EVENT DATE: 2014
